FAERS Safety Report 9282607 (Version 3)
Quarter: 2013Q2

REPORT INFORMATION
  Report Type: Spontaneous
  Country: US (occurrence: US)
  Receive Date: 20130510
  Receipt Date: 20130624
  Transmission Date: 20140414
  Serious: Yes (Other)
  Sender: FDA-Public Use
  Company Number: CHPA2013US007959

PATIENT
  Age: 82 Year
  Sex: Female

DRUGS (11)
  1. VOLTAREN GEL [Suspect]
     Indication: NEUROPATHY PERIPHERAL
     Dosage: UNK, QID
     Route: 061
     Dates: start: 20121204, end: 201304
  2. CYMBALTA [Concomitant]
  3. METOPROLOL [Concomitant]
  4. DIOVAN [Concomitant]
  5. PRILOSEC [Concomitant]
  6. CALCIUM [Concomitant]
  7. SYNTHROID [Concomitant]
  8. LANOXIN [Concomitant]
  9. ASPIRIN [Concomitant]
  10. NORVASC [Concomitant]
  11. FINACEA [Concomitant]

REACTIONS (7)
  - Cerebrovascular accident [Unknown]
  - Convulsion [Unknown]
  - Muscle spasticity [Recovering/Resolving]
  - Muscle spasms [Unknown]
  - Off label use [Unknown]
  - Therapeutic response unexpected [Unknown]
  - Wrong technique in drug usage process [Unknown]
